FAERS Safety Report 4554269-3 (Version None)
Quarter: 2004Q4

REPORT INFORMATION
  Report Type: 
  Country: None (occurrence: None)
  Receive Date: 20041222
  Receipt Date: 20041007
  Transmission Date: 20050328
  Serious: No
  Sender: FDA-Public Use
  Company Number: 209495

PATIENT
  Age: 77 Year
  Sex: Female
  Weight: 46.4 kg

DRUGS (6)
  1. AVASTIN [Suspect]
     Indication: COLORECTAL CANCER METASTATIC
     Dosage: SEE IMAGE
     Route: 042
     Dates: start: 20040720
  2. ALOXI (PALONOSETRON) [Concomitant]
  3. DECADRON [Concomitant]
  4. OXALIPLATIN (OXALIPLATIN) [Concomitant]
  5. LEUCOVORIN CALCIUM [Concomitant]
  6. FLUOROURACIL [Concomitant]

REACTIONS (1)
  - INFUSION RELATED REACTION [None]
